FAERS Safety Report 10013559 (Version 1)
Quarter: 2014Q1

REPORT INFORMATION
  Report Type: Spontaneous
  Country: AU (occurrence: AU)
  Receive Date: 20140315
  Receipt Date: 20140315
  Transmission Date: 20141002
  Serious: Yes (Other)
  Sender: FDA-Public Use
  Company Number: AU-ROCHE-1364737

PATIENT
  Sex: Female

DRUGS (3)
  1. CAPECITABINE [Suspect]
     Indication: BREAST CANCER METASTATIC
     Dosage: DOSE UNSPECIFIED
     Route: 065
  2. EXEMESTANE [Suspect]
     Indication: BREAST CANCER METASTATIC
     Dosage: DOSE UNSPECIFIED
     Route: 065
  3. FEMARA [Suspect]
     Indication: BREAST CANCER METASTATIC
     Dosage: DOSE UNSPECIFIED
     Route: 048

REACTIONS (1)
  - Disease progression [Unknown]
